FAERS Safety Report 4947201-1 (Version None)
Quarter: 2006Q1

REPORT INFORMATION
  Report Type: 
  Country: None (occurrence: None)
  Receive Date: 20060313
  Receipt Date: 20060226
  Transmission Date: 20060701
  Serious: Yes (Other)
  Sender: FDA-Public Use
  Company Number: 2006028011

PATIENT
  Sex: Male
  Weight: 113.3993 kg

DRUGS (10)
  1. VIAGRA [Suspect]
     Indication: ERECTILE DYSFUNCTION
     Dosage: 50 MG (50 MG, AS NECESSARY) ORAL
     Route: 048
  2. CIALIS [Suspect]
     Indication: ERECTILE DYSFUNCTION
     Dates: start: 20060101
  3. DETROL LA [Concomitant]
  4. ACTOS [Concomitant]
  5. METFORMIN [Concomitant]
  6. GLYBURIDE [Concomitant]
  7. ALTACE [Concomitant]
  8. DOXAZOSIN [Concomitant]
  9. EFFEXOR [Concomitant]
  10. GLUCOTROL [Concomitant]

REACTIONS (5)
  - CARDIAC STRESS TEST ABNORMAL [None]
  - DRUG INEFFECTIVE [None]
  - FALL [None]
  - MYOCARDIAL INFARCTION [None]
  - SPINAL FRACTURE [None]
